FAERS Safety Report 8666547 (Version 6)
Quarter: 2013Q2

REPORT INFORMATION
  Report Type: Report from Study
  Country: US (occurrence: US)
  Receive Date: 20120716
  Receipt Date: 20130411
  Transmission Date: 20140414
  Serious: Yes (Hospitalization)
  Sender: FDA-Public Use
  Company Number: US-ABBOTT-12P-163-0954196-05

PATIENT
  Age: 49 Year
  Sex: Female
  Weight: 94 kg

DRUGS (18)
  1. HUMIRA [Suspect]
     Indication: CROHN^S DISEASE
     Dosage: BASELINE
     Route: 058
     Dates: start: 20090311, end: 20090311
  2. HUMIRA [Suspect]
     Dosage: WEEK 2
     Route: 058
  3. HUMIRA [Suspect]
     Route: 058
  4. PROVENTIL [Concomitant]
     Indication: DYSPNOEA
     Dosage: 2.5  MG/3 ML, EVERY 6 HOURS AS REQUIRED
     Dates: start: 20110511, end: 20121116
  5. FOLIC ACID [Concomitant]
     Indication: PROPHYLAXIS
     Dates: start: 20120227
  6. PREDNISONE [Concomitant]
     Indication: CROHN^S DISEASE
     Dates: start: 20110829, end: 20110921
  7. PREDNISONE [Concomitant]
     Dates: start: 20110921, end: 20120116
  8. PREDNISONE [Concomitant]
     Dates: start: 20120116, end: 20120821
  9. FOSAMAX [Concomitant]
     Indication: OSTEOPENIA
     Dates: start: 20120116, end: 20121116
  10. CALCIUM CARBONATE [Concomitant]
     Indication: OSTEOPENIA
     Dates: start: 20120116, end: 20121116
  11. COLACE [Concomitant]
     Indication: CONSTIPATION
     Dates: start: 20101210
  12. VITAMIN D2 [Concomitant]
     Indication: VITAMIN D DEFICIENCY
     Dosage: X 6 DAYS, THEN 1 TIME PER WEEK
     Dates: start: 20101210, end: 20120821
  13. NORCO [Concomitant]
     Indication: PAIN
     Dosage: 10-325 MG
     Dates: start: 20101210
  14. ZITHROMAX [Concomitant]
     Indication: PHARYNGITIS STREPTOCOCCAL
     Dates: start: 20120315, end: 20120319
  15. ULTRAM [Concomitant]
     Indication: PAIN
     Route: 048
     Dates: start: 20110310, end: 20120623
  16. CYANOCOBALAMIN [Concomitant]
     Indication: ROUTINE HEALTH MAINTENANCE
     Dates: start: 20110829, end: 20111212
  17. CYANOCOBALAMIN [Concomitant]
     Indication: VITAMIN B12 DECREASED
     Route: 050
     Dates: start: 20111212, end: 20120921
  18. CYANOCOBALAMIN [Concomitant]
     Indication: VITAMIN B12 DEFICIENCY

REACTIONS (8)
  - Cerebrovascular disorder [Not Recovered/Not Resolved]
  - Inflammatory bowel disease [Recovered/Resolved]
  - Small intestinal obstruction [Recovered/Resolved]
  - Paraesthesia [Recovered/Resolved]
  - Headache [Recovered/Resolved]
  - Gait disturbance [Recovered/Resolved]
  - Paraesthesia [Recovered/Resolved]
  - Subarachnoid haemorrhage [Recovered/Resolved]
